FAERS Safety Report 16817323 (Version 1)
Quarter: 2019Q3

REPORT INFORMATION
  Report Type: Spontaneous
  Country: US (occurrence: US)
  Receive Date: 20190917
  Receipt Date: 20190917
  Transmission Date: 20191005
  Serious: No
  Sender: FDA-Public Use
  Company Number: US-PFIZER INC-2019340465

PATIENT
  Age: 82 Year
  Sex: Female

DRUGS (1)
  1. NORPACE CR [Suspect]
     Active Substance: DISOPYRAMIDE PHOSPHATE
     Dosage: 300 MG, 3X/DAY (100MG CAPSULES; THREE CAPSULES THREE TIMES A DAY)

REACTIONS (3)
  - Intercepted product dispensing error [Unknown]
  - Drug intolerance [Unknown]
  - Prescribed overdose [Unknown]
